FAERS Safety Report 10156921 (Version 1)
Quarter: 2014Q2

REPORT INFORMATION
  Report Type: Spontaneous
  Country: US (occurrence: US)
  Receive Date: 20140507
  Receipt Date: 20140507
  Transmission Date: 20141212
  Serious: No
  Sender: FDA-Public Use
  Company Number: US-BAYER-2014-067222

PATIENT
  Age: 75 Year
  Sex: Female
  Weight: 78 kg

DRUGS (1)
  1. ALEVE GELCAPS [Suspect]
     Indication: TRIGEMINAL NEURALGIA
     Dosage: 1 DF, PRN
     Route: 048
     Dates: start: 20140430, end: 20140501

REACTIONS (1)
  - Joint swelling [Recovered/Resolved]
